FAERS Safety Report 23287305 (Version 1)
Quarter: 2023Q4

REPORT INFORMATION
  Report Type: Spontaneous
  Country: US (occurrence: None)
  Receive Date: 20231210
  Receipt Date: 20231210
  Transmission Date: 20240110
  Serious: Yes (Other)
  Sender: FDA-Public Use
  Company Number: None

PATIENT
  Age: 70 Year
  Sex: Male
  Weight: 128 kg

DRUGS (20)
  1. MOUNJARO [Suspect]
     Active Substance: TIRZEPATIDE
     Indication: Diabetes mellitus
     Dosage: OTHER FREQUENCY : WEEKLY;?
     Route: 058
  2. CPAP [Concomitant]
  3. ATORVASTATIN [Concomitant]
  4. BUPROPION [Concomitant]
  5. Escotalopram [Concomitant]
  6. ESOMEPRAZOLE [Concomitant]
     Active Substance: ESOMEPRAZOLE
  7. GLIMEPIRIDE [Concomitant]
     Active Substance: GLIMEPIRIDE
  8. JANUVIA [Concomitant]
     Active Substance: SITAGLIPTIN PHOSPHATE
  9. LOSARTAN [Concomitant]
  10. METFORMIN [Concomitant]
  11. MONTELUKAST [Concomitant]
     Active Substance: MONTELUKAST SODIUM
  12. TAMSULOSIN [Concomitant]
  13. ?-Lipoic acid [Concomitant]
  14. COENZYME Q10 [Concomitant]
     Active Substance: DIETARY SUPPLEMENT\UBIDECARENONE
  15. MAGNESIUM OXIDE [Concomitant]
     Active Substance: MAGNESIUM OXIDE
  16. Multi-vitamin [Concomitant]
  17. Prebiotic fiber supplement [Concomitant]
  18. TAURINE [Concomitant]
  19. VITAMIN D3 [Concomitant]
     Active Substance: CHOLECALCIFEROL
  20. MENAQUINONE 6 [Concomitant]
     Active Substance: MENAQUINONE 6

REACTIONS (9)
  - Headache [None]
  - Diarrhoea [None]
  - Brain fog [None]
  - Tremor [None]
  - Asthenia [None]
  - Fatigue [None]
  - Blood pressure decreased [None]
  - Blood glucose increased [None]
  - Balance disorder [None]

NARRATIVE: CASE EVENT DATE: 20231202
